FAERS Safety Report 19766743 (Version 2)
Quarter: 2022Q2

REPORT INFORMATION
  Report Type: Spontaneous
  Country: CN (occurrence: CN)
  Receive Date: 20210830
  Receipt Date: 20220406
  Transmission Date: 20220721
  Serious: Yes (Hospitalization)
  Sender: FDA-Public Use
  Company Number: CN-PFIZER INC-202101083934

PATIENT
  Age: 19 Day
  Sex: Female
  Weight: .78 kg

DRUGS (2)
  1. DIFLUCAN [Suspect]
     Active Substance: FLUCONAZOLE
     Indication: Neonatal respiratory distress syndrome
     Dosage: 9 MG, 1X/DAY
     Route: 041
     Dates: start: 20210719, end: 20210728
  2. DIFLUCAN [Suspect]
     Active Substance: FLUCONAZOLE
     Dosage: 9 MG, 1X/DAY
     Route: 041
     Dates: start: 20210803

REACTIONS (1)
  - Hepatic function abnormal [Not Recovered/Not Resolved]

NARRATIVE: CASE EVENT DATE: 20210802
